FAERS Safety Report 22629792 (Version 1)
Quarter: 2023Q2

REPORT INFORMATION
  Report Type: Spontaneous
  Country: GB (occurrence: GB)
  Receive Date: 20230622
  Receipt Date: 20230622
  Transmission Date: 20230721
  Serious: Yes (Other)
  Sender: FDA-Public Use
  Company Number: GB-MHRA-TPP5989637C7407127YC1681225271967

PATIENT
  Age: 78 Year
  Sex: Female
  Weight: 56 kg

DRUGS (6)
  1. PREGABALIN [Suspect]
     Active Substance: PREGABALIN
     Indication: Product used for unknown indication
     Dosage: 50 MILLIGRAM, DAILY, CAPSULE
     Route: 050
     Dates: start: 20230403
  2. DERMOL [Concomitant]
     Active Substance: BENZALKONIUM CHLORIDE\CHLORHEXIDINE HYDROCHLORIDE\ISOPROPYL MYRISTATE\PARAFFIN
     Indication: Product used for unknown indication
     Dosage: USE AS DIRECTED; ;; ;
     Route: 065
     Dates: start: 20221219
  3. CALCIUM CARBONATE [Concomitant]
     Active Substance: CALCIUM CARBONATE
     Indication: Product used for unknown indication
     Dosage: 8 DOSAGE FORM, WHEN REQUIRED
     Route: 065
     Dates: start: 20221222
  4. CALCIUM CARBONATE [Concomitant]
     Active Substance: CALCIUM CARBONATE
     Dosage: 1 DOSAGE FORM, DAILY, AT NIGHT
     Route: 065
     Dates: start: 20230411
  5. CALCIUM CARBONATE [Concomitant]
     Active Substance: CALCIUM CARBONATE
     Dosage: APPLY AT NIGHT FOR 2 WEEKS THEN TWICE A WEEK.; ;; ;
     Route: 065
     Dates: start: 20211220
  6. CALCIUM CARBONATE [Concomitant]
     Active Substance: CALCIUM CARBONATE
     Dosage: 1 DOSAGE FORM, DAILY
     Route: 065
     Dates: start: 20230403

REACTIONS (3)
  - Dizziness [Recovered/Resolved]
  - Fatigue [Recovered/Resolved]
  - Visual impairment [Recovered/Resolved]
